FAERS Safety Report 23959994 (Version 1)
Quarter: 2024Q2

REPORT INFORMATION
  Report Type: Spontaneous
  Country: US (occurrence: US)
  Receive Date: 20240611
  Receipt Date: 20240611
  Transmission Date: 20240716
  Serious: Yes (Death, Hospitalization, Other)
  Sender: FDA-Public Use
  Company Number: US-JNJFOC-20240612500

PATIENT
  Sex: Male

DRUGS (2)
  1. CILTACABTAGENE AUTOLEUCEL [Suspect]
     Active Substance: CILTACABTAGENE AUTOLEUCEL
     Indication: Plasma cell myeloma refractory
     Route: 065
  2. IDECABTAGENE VICLEUCEL [Suspect]
     Active Substance: IDECABTAGENE VICLEUCEL
     Indication: Plasma cell myeloma refractory
     Route: 065

REACTIONS (9)
  - Cytokine release syndrome [Fatal]
  - Haemophagocytic lymphohistiocytosis [Fatal]
  - Infection [Fatal]
  - Sepsis [Fatal]
  - Neurotoxicity [Fatal]
  - Immune effector cell-associated neurotoxicity syndrome [Unknown]
  - Neutropenia [Unknown]
  - Anaemia [Unknown]
  - Thrombocytopenia [Unknown]
